FAERS Safety Report 7283070-5 (Version None)
Quarter: 2011Q1

REPORT INFORMATION
  Report Type: 
  Country: None (occurrence: None)
  Receive Date: 20110209
  Receipt Date: 20110207
  Transmission Date: 20110831
  Serious: Yes (Hospitalization)
  Sender: FDA-Public Use
  Company Number: US-ROCHE-754441

PATIENT
  Sex: Female

DRUGS (8)
  1. NEULASTA [Concomitant]
     Dates: start: 20100519
  2. CETRIZINE [Concomitant]
  3. BEVACIZUMAB [Suspect]
     Indication: BREAST CANCER
     Dosage: LAST DOSE:30 APRIL 2010
     Route: 065
     Dates: start: 20100430
  4. CYCLOPHOSPHAMIDE [Suspect]
     Indication: BREAST CANCER
     Dosage: LAST DOSE:30 APRIL 2010
     Route: 065
     Dates: start: 20100430
  5. ACETAMINOPHEN [Concomitant]
  6. DOCETAXEL [Suspect]
     Indication: BREAST CANCER
     Dosage: LAST DOSE:30 APRIL 2010
     Route: 065
     Dates: start: 20100430
  7. FERROUS SULFATE TAB [Concomitant]
  8. OMEPRAZOLE [Concomitant]

REACTIONS (2)
  - OEDEMA [None]
  - VAGINAL HAEMORRHAGE [None]
